FAERS Safety Report 14970084 (Version 1)
Quarter: 2018Q3

REPORT INFORMATION
  Report Type: Spontaneous
  Country: US (occurrence: US)
  Receive Date: 20180530
  Receipt Date: 20180530
  Transmission Date: 20181010
  Serious: No
  Sender: FDA-Public Use
  Company Number: US-KADMON PHARMACEUTICALS, LLC-KAD201708-000945

PATIENT
  Age: 51 Year
  Sex: Female

DRUGS (7)
  1. PEG?INTERFERON ALFA?2A PROCLICK AUTOINJECTOR [Suspect]
     Active Substance: PEGINTERFERON ALFA-2A
     Indication: HEPATITIS C
     Route: 058
     Dates: start: 20130301
  2. PEG?INTERFERON ALFA?2A PROCLICK AUTOINJECTOR [Suspect]
     Active Substance: PEGINTERFERON ALFA-2A
     Dates: start: 20130423
  3. PRILOSEC [Concomitant]
     Active Substance: OMEPRAZOLE MAGNESIUM
     Indication: ABDOMINAL PAIN
  4. XANAX [Concomitant]
     Active Substance: ALPRAZOLAM
  5. RIBASPHERE [Suspect]
     Active Substance: RIBAVIRIN
     Indication: HEPATITIS C
     Dates: start: 20130301
  6. RIBASPHERE [Suspect]
     Active Substance: RIBAVIRIN
     Dates: start: 20130423
  7. TYLENOL [Concomitant]
     Active Substance: ACETAMINOPHEN

REACTIONS (21)
  - Hair texture abnormal [Unknown]
  - Injection site erythema [Unknown]
  - Gastroenteritis viral [Unknown]
  - Anxiety [Recovered/Resolved]
  - Injection site exfoliation [Unknown]
  - Influenza like illness [None]
  - Pain [Unknown]
  - Drug dose omission [Unknown]
  - Constipation [Unknown]
  - Fatigue [Unknown]
  - Back pain [Unknown]
  - White blood cell count decreased [Unknown]
  - Platelet count decreased [Unknown]
  - Asthenia [Unknown]
  - Tachycardia [Recovered/Resolved]
  - Abdominal pain [Recovering/Resolving]
  - Bowel movement irregularity [Unknown]
  - Nausea [Unknown]
  - Hyperhidrosis [Recovered/Resolved]
  - Vomiting [Recovering/Resolving]
  - Alopecia [Unknown]
